FAERS Safety Report 18044000 (Version 3)
Quarter: 2020Q3

REPORT INFORMATION
  Report Type: Spontaneous
  Country: US (occurrence: US)
  Receive Date: 20200720
  Receipt Date: 20200727
  Transmission Date: 20201103
  Serious: No
  Sender: FDA-Public Use
  Company Number: US-SA-2020SA184978

PATIENT

DRUGS (1)
  1. LANTUS [Suspect]
     Active Substance: INSULIN GLARGINE
     Indication: TYPE 2 DIABETES MELLITUS
     Dosage: 25 IU, QD

REACTIONS (3)
  - Malaise [Unknown]
  - Wrong technique in device usage process [Unknown]
  - Visual impairment [Unknown]

NARRATIVE: CASE EVENT DATE: 20200705
